APPROVED DRUG PRODUCT: TADALAFIL
Active Ingredient: TADALAFIL
Strength: 20MG
Dosage Form/Route: TABLET;ORAL
Application: A206956 | Product #003
Applicant: RISING PHARMA HOLDING INC
Approved: Apr 29, 2019 | RLD: No | RS: No | Type: DISCN